FAERS Safety Report 25224803 (Version 1)
Quarter: 2025Q2

REPORT INFORMATION
  Report Type: Report from Study
  Country: CN (occurrence: CN)
  Receive Date: 20250422
  Receipt Date: 20250422
  Transmission Date: 20250717
  Serious: Yes (Other)
  Sender: ROCHE
  Company Number: CN-ROCHE-10000218476

PATIENT

DRUGS (2)
  1. BEVACIZUMAB [Suspect]
     Active Substance: BEVACIZUMAB
     Indication: Hepatic cancer
     Route: 042
  2. SINTILIMAB [Suspect]
     Active Substance: SINTILIMAB
     Indication: Hepatic cancer
     Route: 042

REACTIONS (14)
  - Leukopenia [Unknown]
  - Thrombocytopenia [Recovered/Resolved]
  - Hypertension [Unknown]
  - Nausea [Unknown]
  - Vomiting [Unknown]
  - Gastrointestinal haemorrhage [Unknown]
  - Proteinuria [Unknown]
  - Ascites [Unknown]
  - Transaminases increased [Unknown]
  - Renal failure [Unknown]
  - Hyperbilirubinaemia [Unknown]
  - Hypoproteinaemia [Unknown]
  - Immune-mediated hypothyroidism [Unknown]
  - Immune-mediated dermatitis [Unknown]
